FAERS Safety Report 8272031-5 (Version None)
Quarter: 2012Q1

REPORT INFORMATION
  Report Type: 
  Country: None (occurrence: None)
  Receive Date: 20120308
  Receipt Date: 20120109
  Transmission Date: 20120608
  Serious: No
  Sender: FDA-Public Use
  Company Number: PHEH2012US000910

PATIENT
  Age: 22 Year
  Sex: Female

DRUGS (1)
  1. FANAPT [Suspect]
     Dosage: 2 MG, BID, ORAL
     Route: 048

REACTIONS (1)
  - INSOMNIA [None]
